FAERS Safety Report 7542975-8 (Version None)
Quarter: 2011Q2

REPORT INFORMATION
  Report Type: 
  Country: None (occurrence: None)
  Receive Date: 20110613
  Receipt Date: 20110601
  Transmission Date: 20111010
  Serious: Yes (Other)
  Sender: FDA-Public Use
  Company Number: PHHY2011US42822

PATIENT
  Sex: Female
  Weight: 58.05 kg

DRUGS (14)
  1. METOCLOPRAMIDE [Concomitant]
     Dosage: UNK UKN, UNK
  2. ROPINIROLE [Concomitant]
     Dosage: UNK UKN, UNK
  3. FEXOFENADINE [Concomitant]
     Dosage: UNK UKN, UNK
  4. SCOPOLAMINE [Concomitant]
     Dosage: UNK UKN, UNK
  5. LEVOTHYROXINE SODIUM [Concomitant]
     Dosage: UNK UKN, UNK
  6. CALCIUM WITH VITAMIN D [Concomitant]
     Dosage: UNK UKN, UNK
  7. BACLOFEN [Concomitant]
     Dosage: UNK UKN, UNK
  8. CYMBALTA [Concomitant]
     Dosage: UNK UKN, UNK
  9. POLYETHYLENE GLYCOL [Concomitant]
     Dosage: UNK UKN, UNK
  10. FAMPRIDINE [Concomitant]
     Dosage: UNK UKN, UNK
  11. LAMOTRIGINE [Concomitant]
     Dosage: UNK UKN, UNK
  12. ADDERALL 10 [Concomitant]
     Dosage: UNK UKN, UNK
  13. GILENYA [Suspect]
     Indication: MULTIPLE SCLEROSIS
     Dosage: 0.5 MG, QD
     Dates: start: 20101011
  14. CLONAZEPAM [Concomitant]
     Dosage: UNK UKN, UNK

REACTIONS (7)
  - COGNITIVE DISORDER [None]
  - FEELING ABNORMAL [None]
  - DRUG INEFFECTIVE [None]
  - AMNESIA [None]
  - DYSKINESIA [None]
  - HALLUCINATION [None]
  - COMMUNICATION DISORDER [None]
